FAERS Safety Report 4865425-9 (Version None)
Quarter: 2005Q4

REPORT INFORMATION
  Report Type: 
  Country: None (occurrence: None)
  Receive Date: 20051219
  Receipt Date: 20051215
  Transmission Date: 20060501
  Serious: Yes (Death, Disabling)
  Sender: FDA-Public Use
  Company Number: TCI2005A04792

PATIENT
  Age: 37 Year
  Sex: Female

DRUGS (3)
  1. LEUPROLIDE ACETATE [Suspect]
     Indication: UTERINE LEIOMYOMA
     Dosage: 1.88 MG (1.88 MG, 1 IN 28 D)
     Route: 058
     Dates: start: 20051028, end: 20051127
  2. HYSRON (MEDROXYPROGESTERONE ACETATE) (TABLETS) [Concomitant]
  3. PREMARIN [Concomitant]

REACTIONS (8)
  - ASTHENIA [None]
  - BLOOD PRESSURE INCREASED [None]
  - CAROTID ARTERY THROMBOSIS [None]
  - CEREBRAL INFARCTION [None]
  - DISORIENTATION [None]
  - DYSARTHRIA [None]
  - HEMIPLEGIA [None]
  - METABOLIC SYNDROME [None]
